FAERS Safety Report 12088554 (Version 1)
Quarter: 2016Q1

REPORT INFORMATION
  Report Type: Spontaneous
  Country: FR (occurrence: FR)
  Receive Date: 20160218
  Receipt Date: 20160218
  Transmission Date: 20160526
  Serious: Yes (Other)
  Sender: FDA-Public Use
  Company Number: FR-ACCORD-037956

PATIENT

DRUGS (1)
  1. FLUOROURACIL ACCORD [Suspect]
     Active Substance: FLUOROURACIL
     Indication: CHEMOTHERAPY
     Dosage: STRENGTH: 50 MG/ML??ADMINISTERED BY USING DIFFUSER RIGID BAXTER DEVICE FOR 48 HRS.
     Route: 042

REACTIONS (2)
  - Drug administration error [Unknown]
  - Drug dose omission [Unknown]
